FAERS Safety Report 8289643-5 (Version None)
Quarter: 2012Q2

REPORT INFORMATION
  Report Type: 
  Country: None (occurrence: None)
  Receive Date: 20120417
  Receipt Date: 20120413
  Transmission Date: 20120825
  Serious: Yes (Other)
  Sender: FDA-Public Use
  Company Number: US-PFIZER INC-2012093796

PATIENT
  Sex: Female

DRUGS (10)
  1. METFORMIN [Concomitant]
     Dosage: UNK
  2. AMBIEN [Concomitant]
     Dosage: UNK
  3. LORAZEPAM [Concomitant]
     Dosage: UNK
  4. ASENAPINE [Concomitant]
     Dosage: UNK
  5. PACLITAXEL [Concomitant]
     Dosage: UNK
  6. LAMICTAL [Concomitant]
     Dosage: UNK
  7. PRISTIQ [Suspect]
     Dosage: 50 (NO UNITS PROVIDED), ONCE DAILY AM
  8. EPIRUBICIN [Concomitant]
     Dosage: UNK
  9. CYTOXAN [Concomitant]
     Dosage: UNK
  10. FLUOROURACIL [Concomitant]
     Dosage: UNK

REACTIONS (2)
  - OVARIAN CANCER [None]
  - BREAST CANCER [None]
